FAERS Safety Report 7414403-4 (Version None)
Quarter: 2011Q2

REPORT INFORMATION
  Report Type: 
  Country: None (occurrence: None)
  Receive Date: 20110411
  Receipt Date: 20110411
  Transmission Date: 20111010
  Serious: Yes (Other)
  Sender: FDA-Public Use
  Company Number: None

PATIENT
  Age: 33 Year
  Sex: Female
  Weight: 88.905 kg

DRUGS (2)
  1. CHANTIX [Suspect]
     Indication: SMOKING CESSATION THERAPY
     Dosage: ONE PILL TWICE DAILY UNK
     Dates: start: 20110301, end: 20110330
  2. CHANTIX [Suspect]

REACTIONS (5)
  - MOOD SWINGS [None]
  - AGITATION [None]
  - ANXIETY [None]
  - DISTURBANCE IN ATTENTION [None]
  - DEPRESSION [None]
